FAERS Safety Report 12469746 (Version 2)
Quarter: 2016Q3

REPORT INFORMATION
  Report Type: Spontaneous
  Country: ES (occurrence: ES)
  Receive Date: 20160615
  Receipt Date: 20160702
  Transmission Date: 20161109
  Serious: Yes (Hospitalization, Other)
  Sender: FDA-Public Use
  Company Number: ES-AMGEN-ESPSP2016069145

PATIENT
  Age: 56 Year
  Sex: Female

DRUGS (10)
  1. ENBREL [Suspect]
     Active Substance: ETANERCEPT
     Indication: RHEUMATOID ARTHRITIS
     Dosage: 50 MG, WEEKLY (ON MONDAYS)
     Route: 058
     Dates: start: 20160226
  2. ENBREL [Suspect]
     Active Substance: ETANERCEPT
     Dosage: 50 MG, WEEKLY (ON MONDAYS)
     Route: 058
  3. LIVAZO [Concomitant]
     Active Substance: PITAVASTATIN CALCIUM
     Indication: HYPERCHOLESTEROLAEMIA
     Dosage: 2 MG, DAILY
  4. ENBREL [Suspect]
     Active Substance: ETANERCEPT
     Dosage: 50 MG, WEEKLY (ON MONDAYS)
     Route: 058
  5. PROCORALAN [Concomitant]
     Active Substance: IVABRADINE
     Indication: CARDIAC VALVE DISEASE
     Dosage: 5 MG, DAILY
  6. NITRODERM [Concomitant]
     Active Substance: NITROGLYCERIN
     Indication: CARDIAC VALVE DISEASE
     Dosage: 10 MG, DAILY
  7. EZETROL [Concomitant]
     Active Substance: EZETIMIBE
     Indication: HYPERCHOLESTEROLAEMIA
     Dosage: 10 MG, DAILY
  8. INACID                             /00003801/ [Concomitant]
     Active Substance: INDOMETHACIN
     Indication: RHEUMATOID ARTHRITIS
     Dosage: 2 DF, DAILY (2 TABLETS EVERY 24H)
  9. CEMIDON [Concomitant]
     Active Substance: ISONIAZID
     Indication: TUBERCULOSIS
     Dosage: 300 MG, DAILY
  10. ASPIRINA [Concomitant]
     Active Substance: ASPIRIN
     Indication: CARDIAC VALVE DISEASE
     Dosage: 100 MG, DAILY

REACTIONS (4)
  - Injection site haematoma [Recovered/Resolved]
  - Injection site pain [Recovered/Resolved]
  - Injection site erythema [Recovered/Resolved]
  - Angina pectoris [Not Recovered/Not Resolved]

NARRATIVE: CASE EVENT DATE: 2016
